FAERS Safety Report 16204510 (Version 1)
Quarter: 2019Q2

REPORT INFORMATION
  Report Type: Report from Study
  Country: US (occurrence: US)
  Receive Date: 20190416
  Receipt Date: 20190416
  Transmission Date: 20190711
  Serious: Yes (Death)
  Sender: FDA-Public Use
  Company Number: US-ACTELION-A-US2019-188867

PATIENT
  Age: 23 Year
  Sex: Male

DRUGS (2)
  1. VELETRI [Suspect]
     Active Substance: EPOPROSTENOL
     Dosage: 65.1 NG/KG, PER MIN
     Route: 042
     Dates: end: 20190403
  2. VELETRI [Suspect]
     Active Substance: EPOPROSTENOL
     Indication: PULMONARY ARTERIAL HYPERTENSION
     Dosage: 63 NG/KG, PER MIN
     Route: 042
     Dates: start: 20190306

REACTIONS (2)
  - Cardiac arrest [Fatal]
  - Anaemia [Unknown]

NARRATIVE: CASE EVENT DATE: 20190329
